FAERS Safety Report 6518801-2 (Version None)
Quarter: 2009Q4

REPORT INFORMATION
  Report Type: 
  Country: None (occurrence: None)
  Receive Date: 20091228
  Receipt Date: 20091214
  Transmission Date: 20100525
  Serious: Yes (Hospitalization)
  Sender: FDA-Public Use
  Company Number: ES-JNJFOC-20091201315

PATIENT
  Age: 87 Year
  Sex: Female

DRUGS (1)
  1. ADOLONTA [Suspect]
     Indication: OSTEOPOROSIS
     Route: 042

REACTIONS (1)
  - ATRIAL FLUTTER [None]
